FAERS Safety Report 16228653 (Version 1)
Quarter: 2019Q2

REPORT INFORMATION
  Report Type: Spontaneous
  Country: US (occurrence: US)
  Receive Date: 20190422
  Receipt Date: 20190422
  Transmission Date: 20190711
  Serious: Yes (Disabling)
  Sender: FDA-Public Use
  Company Number: None

PATIENT
  Age: 48 Year
  Sex: Male
  Weight: 85.5 kg

DRUGS (4)
  1. ENALAPRIL [Concomitant]
     Active Substance: ENALAPRIL
  2. ATENOLOL. [Concomitant]
     Active Substance: ATENOLOL
  3. ATORVASTATIN [Concomitant]
     Active Substance: ATORVASTATIN
  4. MOXIFLOXACIN. [Suspect]
     Active Substance: MOXIFLOXACIN
     Indication: POSTOPERATIVE CARE
     Route: 047
     Dates: start: 20170523, end: 20170523

REACTIONS (3)
  - Retinal detachment [None]
  - Photosensitivity reaction [None]
  - Pigmentary glaucoma [None]

NARRATIVE: CASE EVENT DATE: 20170523
